FAERS Safety Report 4307838-X (Version None)
Quarter: 2004Q1

REPORT INFORMATION
  Report Type: 
  Country: None (occurrence: None)
  Receive Date: 20040226
  Receipt Date: 20030922
  Transmission Date: 20041129
  Serious: Yes (Hospitalization)
  Sender: FDA-Public Use
  Company Number: 2003177670US

PATIENT
  Age: 69 Year
  Sex: Male

DRUGS (3)
  1. CELEBREX [Suspect]
     Indication: OSTEOARTHRITIS
     Dosage: 200 MG, QD, ORAL
     Route: 048
     Dates: start: 20030908, end: 20030919
  2. CITRUCEL [Concomitant]
  3. LESSITHIN [Concomitant]

REACTIONS (2)
  - DYSPNOEA [None]
  - FATIGUE [None]
